FAERS Safety Report 13570868 (Version 1)
Quarter: 2017Q2

REPORT INFORMATION
  Report Type: Spontaneous
  Country: ES (occurrence: ES)
  Receive Date: 20170523
  Receipt Date: 20170523
  Transmission Date: 20170830
  Serious: Yes (Other)
  Sender: FDA-Public Use
  Company Number: ES-BEH-2017080552

PATIENT
  Age: 21 Month
  Sex: Female

DRUGS (11)
  1. HUMAN NORMAL IMMUNOGLOBULIN [Concomitant]
     Active Substance: HUMAN IMMUNOGLOBULIN G
     Indication: INFLAMMATION
  2. RED BLOOD CELLS [Concomitant]
     Active Substance: HUMAN RED BLOOD CELL
  3. HUMAN NORMAL IMMUNOGLOBULIN [Concomitant]
     Active Substance: HUMAN IMMUNOGLOBULIN G
     Indication: HISTIOCYTOSIS HAEMATOPHAGIC
     Dosage: 1000 MG/KG, UNK
     Route: 065
  4. HUMAN FIBRINOGEN FACTOR I (INN) [Suspect]
     Active Substance: FIBRINOGEN HUMAN
     Indication: HYPOFIBRINOGENAEMIA
     Dosage: 4 DOSES
     Route: 065
  5. METHYLPREDNISOLONE. [Concomitant]
     Active Substance: METHYLPREDNISOLONE
     Indication: HISTIOCYTOSIS HAEMATOPHAGIC
     Dosage: 2 MG/KG, UNK
     Route: 065
  6. ECULIZUMAB [Concomitant]
     Active Substance: ECULIZUMAB
  7. CEFOTAXIME [Concomitant]
     Active Substance: CEFOTAXIME SODIUM
  8. GANCICLOVIR. [Concomitant]
     Active Substance: GANCICLOVIR
     Indication: CYTOMEGALOVIRUS INFECTION
     Dosage: 5 MG/KG, QD
     Route: 065
  9. HUMAN FIBRINOGEN FACTOR I (INN) [Suspect]
     Active Substance: FIBRINOGEN HUMAN
     Indication: HAEMOLYTIC URAEMIC SYNDROME
  10. METHYLPREDNISOLONE. [Concomitant]
     Active Substance: METHYLPREDNISOLONE
     Indication: INFLAMMATION
  11. HUMAN FIBRINOGEN FACTOR I (INN) [Suspect]
     Active Substance: FIBRINOGEN HUMAN
     Indication: HISTIOCYTOSIS HAEMATOPHAGIC

REACTIONS (3)
  - Intracardiac thrombus [Unknown]
  - Supraventricular extrasystoles [Unknown]
  - Ventricular extrasystoles [Unknown]
